FAERS Safety Report 7556230-3 (Version None)
Quarter: 2011Q2

REPORT INFORMATION
  Report Type: 
  Country: None (occurrence: None)
  Receive Date: 20110615
  Receipt Date: 20110615
  Transmission Date: 20111010
  Serious: No
  Sender: FDA-Public Use
  Company Number: None

PATIENT
  Age: 59 Year
  Sex: Female
  Weight: 81.6475 kg

DRUGS (1)
  1. PROMETRIUM [Suspect]
     Indication: ENDOMETRIAL HYPERPLASIA
     Dosage: 400 MG HS FOR 10 DAYS PO
     Route: 048
     Dates: start: 20110301, end: 20110610

REACTIONS (2)
  - MUSCLE SPASMS [None]
  - ABASIA [None]
